APPROVED DRUG PRODUCT: PROVERA
Active Ingredient: MEDROXYPROGESTERONE ACETATE
Strength: 5MG
Dosage Form/Route: TABLET;ORAL
Application: N011839 | Product #003 | TE Code: AB
Applicant: PFIZER INC
Approved: Approved Prior to Jan 1, 1982 | RLD: Yes | RS: No | Type: RX